FAERS Safety Report 8045412-2 (Version None)
Quarter: 2012Q1

REPORT INFORMATION
  Report Type: 
  Country: None (occurrence: None)
  Receive Date: 20120113
  Receipt Date: 20120106
  Transmission Date: 20120608
  Serious: Yes (Life-Threatening)
  Sender: FDA-Public Use
  Company Number: AU-B.I. PHARMACEUTICALS,INC./RIDGEFIELD-2012-AU-00070AU

PATIENT
  Sex: Male

DRUGS (5)
  1. PRADAXA [Suspect]
     Indication: CEREBROVASCULAR ACCIDENT PROPHYLAXIS
     Dosage: 300 MG
     Dates: start: 20110707, end: 20111225
  2. COLCHICINE [Concomitant]
     Indication: GOUT
     Dosage: 500 MCG
     Dates: start: 20111101
  3. PRADAXA [Suspect]
     Indication: ATRIAL FIBRILLATION
     Dosage: 220 MG
     Dates: start: 20111226, end: 20120102
  4. ALLOPURINOL [Concomitant]
     Indication: GOUT
     Dosage: 100 MG
     Dates: start: 20111101
  5. RAMIPRIL [Concomitant]

REACTIONS (4)
  - CONJUNCTIVITIS ALLERGIC [None]
  - FATIGUE [None]
  - JOINT STIFFNESS [None]
  - RENAL IMPAIRMENT [None]
